FAERS Safety Report 21250221 (Version 1)
Quarter: 2022Q3

REPORT INFORMATION
  Report Type: Spontaneous
  Country: US (occurrence: US)
  Receive Date: 20220824
  Receipt Date: 20220824
  Transmission Date: 20221026
  Serious: No
  Sender: FDA-Public Use
  Company Number: US-NOVARTISTESTPH-NVSC2022US189073

PATIENT
  Age: 72 Year
  Sex: Female

DRUGS (1)
  1. INCLISIRAN [Suspect]
     Active Substance: INCLISIRAN
     Indication: Product used for unknown indication
     Dosage: 184 MG
     Route: 058
     Dates: start: 20220423

REACTIONS (1)
  - Blood triglycerides increased [Not Recovered/Not Resolved]

NARRATIVE: CASE EVENT DATE: 20220812
